FAERS Safety Report 14782431 (Version 1)
Quarter: 2018Q2

REPORT INFORMATION
  Report Type: Spontaneous
  Country: US (occurrence: US)
  Receive Date: 20180420
  Receipt Date: 20180420
  Transmission Date: 20180711
  Serious: No
  Sender: FDA-Public Use
  Company Number: US-PFIZER INC-2018160983

PATIENT

DRUGS (1)
  1. FENTANYL CITRATE. [Suspect]
     Active Substance: FENTANYL CITRATE
     Indication: PAIN
     Dosage: UNK

REACTIONS (1)
  - Drug ineffective [Unknown]
